FAERS Safety Report 4310014-8 (Version None)
Quarter: 2004Q1

REPORT INFORMATION
  Report Type: 
  Country: None (occurrence: None)
  Receive Date: 20040301
  Receipt Date: 20031028
  Transmission Date: 20041129
  Serious: No
  Sender: FDA-Public Use
  Company Number: WAES0309USA01227

PATIENT
  Age: 67 Year
  Sex: Female
  Weight: 80.7403 kg

DRUGS (6)
  1. ZETIA [Suspect]
     Indication: BLOOD CHOLESTEROL INCREASED
     Dosage: 10 MG/DAILY/PO; DAILY PO
     Route: 048
     Dates: start: 20030611, end: 20030715
  2. ALLEGRA-D [Concomitant]
  3. ATACAND [Concomitant]
  4. GLUCOPHAGE XR [Concomitant]
  5. ASPIRIN [Concomitant]
  6. STATIN (UNSPECIFIED) [Concomitant]

REACTIONS (1)
  - HYPOAESTHESIA [None]
